FAERS Safety Report 6461994-6 (Version None)
Quarter: 2009Q4

REPORT INFORMATION
  Report Type: 
  Country: None (occurrence: None)
  Receive Date: 20091123
  Receipt Date: 20091109
  Transmission Date: 20100525
  Serious: Yes (Hospitalization)
  Sender: FDA-Public Use
  Company Number: 2009AC000403

PATIENT
  Age: 64 Year
  Sex: Female

DRUGS (26)
  1. DIGOXIN [Suspect]
     Indication: HEART RATE IRREGULAR
     Dosage: 0.25 MG;QD; PO
     Route: 048
  2. PREDNISONE [Concomitant]
  3. WARFARIN SODIUM [Concomitant]
  4. METOPROLOL [Concomitant]
  5. PROTONIX [Concomitant]
  6. PLAQUENIL [Concomitant]
  7. TOPROL-XL [Concomitant]
  8. CALCIUM [Concomitant]
  9. CELLCEPT [Concomitant]
  10. METHOTROXATE [Concomitant]
  11. FOLIC ACID [Concomitant]
  12. ACETAMINOPHIN [Concomitant]
  13. PANTOPRAZOLE [Concomitant]
  14. VITAMIN D [Concomitant]
  15. HYDROCODONE [Concomitant]
  16. FOSAMAX [Concomitant]
  17. NEXIUM [Concomitant]
  18. FENTANYL [Concomitant]
  19. CELLCEPT [Concomitant]
  20. FOSAMAX [Concomitant]
  21. COLCHICINE [Concomitant]
  22. PLAQUENIL [Concomitant]
  23. PROTONIX [Concomitant]
  24. HYDROCODONE [Concomitant]
  25. COUMADIN [Concomitant]
  26. TOPROL-XL [Concomitant]

REACTIONS (26)
  - ATRIAL FIBRILLATION [None]
  - BURNING SENSATION [None]
  - CHEST PAIN [None]
  - COLD SWEAT [None]
  - COUGH [None]
  - DIZZINESS [None]
  - DYSPNOEA [None]
  - FALL [None]
  - HEADACHE [None]
  - HYPOAESTHESIA [None]
  - LEUKOCYTOCLASTIC VASCULITIS [None]
  - LYMPHADENOPATHY [None]
  - METAMORPHOPSIA [None]
  - PAIN IN EXTREMITY [None]
  - PALPITATIONS [None]
  - PANCREATITIS [None]
  - PARAESTHESIA [None]
  - PURPURA [None]
  - RASH [None]
  - SYNCOPE [None]
  - THERAPEUTIC AGENT TOXICITY [None]
  - URTICARIA [None]
  - VERTIGO [None]
  - VISUAL IMPAIRMENT [None]
  - VOMITING [None]
  - WEIGHT DECREASED [None]
